FAERS Safety Report 6711220-5 (Version None)
Quarter: 2010Q2

REPORT INFORMATION
  Report Type: 
  Country: None (occurrence: None)
  Receive Date: 20100505
  Receipt Date: 20100428
  Transmission Date: 20101027
  Serious: Yes (Hospitalization)
  Sender: FDA-Public Use
  Company Number: FR-ASTRAZENECA-2010SE19344

PATIENT
  Age: 30203 Day
  Sex: Female

DRUGS (13)
  1. NEXIUM [Suspect]
     Route: 048
     Dates: start: 20091120, end: 20100312
  2. OFLOCET [Suspect]
     Route: 048
     Dates: start: 20091120, end: 20100312
  3. TRIFLUCAN [Suspect]
     Route: 048
     Dates: start: 20091211, end: 20100311
  4. TRIATEC [Suspect]
     Route: 048
     Dates: start: 20091101, end: 20100316
  5. RIFADIN [Suspect]
     Route: 048
     Dates: start: 20091120, end: 20100312
  6. VASTAREL [Concomitant]
     Route: 065
     Dates: start: 20091101, end: 20100311
  7. LEVOTHYROX [Concomitant]
     Route: 065
     Dates: start: 20091101, end: 20100311
  8. FENOFIBRATE [Concomitant]
     Route: 065
     Dates: start: 20091101, end: 20100311
  9. ASPEGIC 1000 [Concomitant]
     Route: 065
     Dates: start: 20091101
  10. CALCIPARINE [Concomitant]
     Route: 065
     Dates: start: 20091218
  11. ZOLPIDEM [Concomitant]
     Route: 065
     Dates: start: 20091218
  12. DAFALGAN [Concomitant]
     Dosage: AS REQUIRED.
     Route: 065
     Dates: start: 20091218
  13. SPASFON [Concomitant]
     Route: 065
     Dates: start: 20091218

REACTIONS (2)
  - LEUKOPENIA [None]
  - NEUTROPENIA [None]
